FAERS Safety Report 8466755-4 (Version None)
Quarter: 2012Q2

REPORT INFORMATION
  Report Type: 
  Country: None (occurrence: None)
  Receive Date: 20120619
  Receipt Date: 20120615
  Transmission Date: 20120825
  Serious: Yes (Hospitalization, Other)
  Sender: FDA-Public Use
  Company Number: ADR-2012-00933

PATIENT
  Sex: Female

DRUGS (2)
  1. LIORESAL [Suspect]
     Indication: MUSCLE SPASTICITY
     Dosage: 999.7 MCG/DAY
  2. LIORESAL [Suspect]
     Indication: STIFF PERSON SYNDROME
     Dosage: 999.7 MCG/DAY

REACTIONS (8)
  - MUSCLE SPASMS [None]
  - CONDITION AGGRAVATED [None]
  - ALCOHOL ABUSE [None]
  - FALL [None]
  - ASPIRATION [None]
  - MUSCLE SPASTICITY [None]
  - DEVICE BREAKAGE [None]
  - IMPLANT SITE REACTION [None]
